FAERS Safety Report 14633886 (Version 1)
Quarter: 2018Q1

REPORT INFORMATION
  Report Type: Spontaneous
  Country: US (occurrence: US)
  Receive Date: 20180314
  Receipt Date: 20180314
  Transmission Date: 20180509
  Serious: Yes (Other)
  Sender: FDA-Public Use
  Company Number: US-AMGEN-USASP2018033906

PATIENT
  Age: 59 Year
  Sex: Female

DRUGS (2)
  1. ENBREL [Suspect]
     Active Substance: ETANERCEPT
     Indication: RHEUMATOID ARTHRITIS
     Dosage: 50 MG, QWK
     Route: 065
     Dates: start: 201608, end: 2017
  2. ENBREL [Suspect]
     Active Substance: ETANERCEPT
     Dosage: 50 MG, QWK
     Route: 065
     Dates: start: 201801

REACTIONS (11)
  - Tooth extraction [Unknown]
  - Psoriasis [Unknown]
  - Accidental exposure to product [Unknown]
  - Injection site mass [Unknown]
  - Upper respiratory tract infection [Unknown]
  - Injection site bruising [Unknown]
  - Localised infection [Unknown]
  - Rheumatoid arthritis [Unknown]
  - Ill-defined disorder [Unknown]
  - Underdose [Unknown]
  - Fungal infection [Unknown]

NARRATIVE: CASE EVENT DATE: 201709
